FAERS Safety Report 10238344 (Version 1)
Quarter: 2014Q2

REPORT INFORMATION
  Report Type: Spontaneous
  Country: US (occurrence: US)
  Receive Date: 20140616
  Receipt Date: 20140616
  Transmission Date: 20141212
  Serious: No
  Sender: FDA-Public Use
  Company Number: US-PFIZER INC-2014163542

PATIENT
  Age: 83 Year
  Sex: Male
  Weight: 65.76 kg

DRUGS (2)
  1. LYRICA [Suspect]
     Indication: DIABETIC NEUROPATHY
     Dosage: 300 MG, (TAKING 75 MG IN MORNING AND 225 MG AT NIGHT)
     Route: 048
     Dates: end: 2014
  2. LYRICA [Suspect]
     Dosage: 300 MG, (TAKING 75 MG IN MORNING AND 225 MG AT NIGHT)
     Route: 048
     Dates: start: 2014, end: 20140611

REACTIONS (2)
  - Insomnia [Not Recovered/Not Resolved]
  - General physical condition abnormal [Unknown]
